FAERS Safety Report 7511953-7 (Version None)
Quarter: 2011Q2

REPORT INFORMATION
  Report Type: 
  Country: None (occurrence: None)
  Receive Date: 20110519
  Receipt Date: 20110504
  Transmission Date: 20111010
  Serious: Yes (Hospitalization)
  Sender: FDA-Public Use
  Company Number: 1000020028

PATIENT
  Age: 84 Year
  Sex: Female
  Weight: 42 kg

DRUGS (13)
  1. CITALOPRAM HYDROBROMIDE [Suspect]
     Indication: DEPRESSION
     Dosage: 20 MG (20 MG, 1 IN 1 D),ORAL  DEPRESSION
     Route: 048
     Dates: end: 20110216
  2. AMLODIPINE [Concomitant]
  3. INSULIN LANTUS (INSULIN GLARGINE) (SOLUTION) (INSULIN GLARGINE) [Concomitant]
  4. STILNOX (ZOLPIDEM)(TABLETS)(ZOLPIDEM) [Concomitant]
  5. ALENDRONIC ACID (ALENDRONIC ACID) (TABLETS) (ALENDRONIC ACID) [Concomitant]
  6. METOPROLOL-CORAX(METOPROLOL TARTRATE) (TABLETS) (METOPROLOL TARTRATE) [Concomitant]
  7. ASPIRIN PROTECT (ACETYLSALICYLIC ACID) (TABLETS) (ACETYLSALICYLIC ACID [Concomitant]
  8. RAMICARD (RAMIPRIL) (TABLETS) (RAMIPRIL) [Concomitant]
  9. GLIMEPIRIDE (GLIMEPIRIDE) (TABLETS) (GLIMEPIRIDE) [Concomitant]
  10. RADEDORM (NITRAZEPAM)(TABLETS)(NITRAZEPAM) [Concomitant]
  11. RAMIPLUS STADA (RAMIPRIL, HYDROCHLOROTHIAZIDE) (TABLETS)(RAMIPRIL, HYD [Concomitant]
  12. STARLIX (NATEGLINIDE) (TABLETS) (NATEGLINIDE) [Concomitant]
  13. RIOPAN (MAGALDRATE)(TABLETS)(MAGALDRATE) [Concomitant]

REACTIONS (13)
  - DISEASE RECURRENCE [None]
  - HEART RATE DECREASED [None]
  - BLOOD BILIRUBIN INCREASED [None]
  - INAPPROPRIATE ANTIDIURETIC HORMONE SECRETION [None]
  - EMPHYSEMA [None]
  - HEPATIC STEATOSIS [None]
  - SYNCOPE [None]
  - BLOOD GLUCOSE INCREASED [None]
  - HEPATIC CYST [None]
  - BLOOD PRESSURE SYSTOLIC INCREASED [None]
  - ELECTROCARDIOGRAM P WAVE ABNORMAL [None]
  - HYPOGLYCAEMIA [None]
  - LIVER INJURY [None]
